FAERS Safety Report 11395860 (Version 1)
Quarter: 2015Q3

REPORT INFORMATION
  Report Type: Spontaneous
  Country: US (occurrence: None)
  Receive Date: 20150817
  Receipt Date: 20150817
  Transmission Date: 20151125
  Serious: No
  Sender: FDA-Public Use
  Company Number: None

PATIENT
  Age: 64 Year
  Sex: Male
  Weight: 96.5 kg

DRUGS (1)
  1. INDOMETHACIN. [Suspect]
     Active Substance: INDOMETHACIN
     Indication: HEADACHE
     Route: 048
     Dates: start: 20120319, end: 20120414

REACTIONS (3)
  - Acute kidney injury [None]
  - Acidosis [None]
  - Gastroenteritis [None]

NARRATIVE: CASE EVENT DATE: 20120414
